FAERS Safety Report 6867869-2 (Version None)
Quarter: 2010Q3

REPORT INFORMATION
  Report Type: 
  Country: None (occurrence: None)
  Receive Date: 20100722
  Receipt Date: 20080505
  Transmission Date: 20110219
  Serious: No
  Sender: FDA-Public Use
  Company Number: US-PFIZER INC-2008039116

PATIENT
  Sex: Female
  Weight: 95.454 kg

DRUGS (4)
  1. CHANTIX [Suspect]
     Indication: SMOKING CESSATION THERAPY
     Dates: start: 20080401
  2. ALBUTEROL [Concomitant]
     Route: 055
  3. CITALOPRAM [Concomitant]
  4. CONTRACEPTIVE, UNSPECIFIED [Concomitant]

REACTIONS (4)
  - FATIGUE [None]
  - HEADACHE [None]
  - NIGHTMARE [None]
  - SLEEP DISORDER [None]
